FAERS Safety Report 7538784-6 (Version None)
Quarter: 2011Q2

REPORT INFORMATION
  Report Type: 
  Country: None (occurrence: None)
  Receive Date: 20110610
  Receipt Date: 20110124
  Transmission Date: 20111010
  Serious: Yes (Hospitalization, Other)
  Sender: FDA-Public Use
  Company Number: US-BAYER-201037247NA

PATIENT
  Age: 16 Year
  Sex: Female
  Weight: 117.91 kg

DRUGS (5)
  1. RANITIDINE [Concomitant]
     Indication: GASTROOESOPHAGEAL REFLUX DISEASE
     Dosage: 300 MG, UNK
     Route: 048
     Dates: start: 20100707
  2. YAZ [Suspect]
     Indication: ACNE
  3. YAZ [Suspect]
     Indication: ORAL CONTRACEPTION
     Dosage: UNK UNK, QD
     Route: 048
     Dates: start: 20080601, end: 20080901
  4. YAZ [Suspect]
     Indication: MENSTRUATION IRREGULAR
  5. ASPIRIN [Concomitant]
     Dosage: 81 MG, QD

REACTIONS (3)
  - PULMONARY FIBROSIS [None]
  - PAIN [None]
  - PULMONARY EMBOLISM [None]
